FAERS Safety Report 18439821 (Version 2)
Quarter: 2020Q4

REPORT INFORMATION
  Report Type: Spontaneous
  Country: DE (occurrence: DE)
  Receive Date: 20201029
  Receipt Date: 20201105
  Transmission Date: 20210114
  Serious: Yes (Other)
  Sender: FDA-Public Use
  Company Number: DE-TEVA-2020-DE-1842603

PATIENT
  Age: 47 Year
  Sex: Male

DRUGS (3)
  1. VALPROIC ACID. [Suspect]
     Active Substance: VALPROIC ACID
     Indication: GENERALISED TONIC-CLONIC SEIZURE
     Dosage: INITIAL DOSAGE NOT STATED
     Route: 065
  2. BUDESONIDE/FORMOTEROL [Concomitant]
     Active Substance: BUDESONIDE\FORMOTEROL
     Indication: ASTHMA
     Dosage: FORMOTEROL/BUDESONIDE 4.5/160MICROG, 2 X 3 PUMP STROKES DAILY
     Route: 065
  3. BUDESONIDE/FORMOTEROL [Concomitant]
     Active Substance: BUDESONIDE\FORMOTEROL
     Indication: ASTHMA
     Dosage: FORMOTEROL/BUDESONIDE 4.5/160MICROG, ONE PUMP STROKE TWICE DAILY
     Route: 065

REACTIONS (1)
  - Pulmonary eosinophilia [Recovering/Resolving]
